FAERS Safety Report 7133134-1 (Version None)
Quarter: 2010Q4

REPORT INFORMATION
  Report Type: 
  Country: None (occurrence: None)
  Receive Date: 20101202
  Receipt Date: 20101122
  Transmission Date: 20110411
  Serious: Yes (Hospitalization)
  Sender: FDA-Public Use
  Company Number: US-JNJFOC-20101107441

PATIENT
  Sex: Male
  Weight: 99.79 kg

DRUGS (5)
  1. INVEGA SUSTENNA [Suspect]
     Indication: SCHIZOPHRENIA
     Route: 030
  2. LOXAPINE [Concomitant]
     Indication: SCHIZOPHRENIA
     Route: 048
  3. BENZTROPINE MESYLATE [Concomitant]
     Route: 048
  4. TRAZODONE [Concomitant]
     Route: 048
  5. SYNTHROID [Concomitant]
     Indication: HYPOTHYROIDISM
     Route: 048

REACTIONS (1)
  - THERAPEUTIC RESPONSE DECREASED [None]
